FAERS Safety Report 4530326-2 (Version None)
Quarter: 2004Q4

REPORT INFORMATION
  Report Type: 
  Country: None (occurrence: None)
  Receive Date: 20041215
  Receipt Date: 20041130
  Transmission Date: 20050328
  Serious: Yes (Life-Threatening, Hospitalization)
  Sender: FDA-Public Use
  Company Number: 9375

PATIENT
  Age: 55 Year
  Sex: Female

DRUGS (5)
  1. FLUOROURACIL [Suspect]
     Indication: COLORECTAL CANCER
     Dates: end: 20030613
  2. LEUCOVORIN CALCIUM [Suspect]
     Indication: COLORECTAL CANCER
     Dates: end: 20030613
  3. OXALIPLATIN [Suspect]
     Indication: COLORECTAL CANCER
     Dates: end: 20030613
  4. EKB-569 [Suspect]
     Indication: COLORECTAL CANCER
     Dosage: 25 MG PO
     Route: 048
     Dates: start: 20030528, end: 20030621
  5. ZOPICLONE [Concomitant]

REACTIONS (3)
  - DIARRHOEA [None]
  - FEBRILE NEUTROPENIA [None]
  - VOMITING [None]
